FAERS Safety Report 9512679 (Version 1)
Quarter: 2013Q3

REPORT INFORMATION
  Report Type: Spontaneous
  Country: US (occurrence: US)
  Receive Date: 20130910
  Receipt Date: 20130910
  Transmission Date: 20140515
  Serious: No
  Sender: FDA-Public Use
  Company Number: US-ASTELLAS-2013US007431

PATIENT
  Age: 55 Year
  Sex: Male

DRUGS (1)
  1. XTANDI [Suspect]
     Indication: ILL-DEFINED DISORDER
     Dosage: 160 MG, UID/QD
     Route: 048
     Dates: start: 20130504

REACTIONS (1)
  - Arthralgia [Unknown]
